FAERS Safety Report 15326342 (Version 1)
Quarter: 2018Q3

REPORT INFORMATION
  Report Type: Spontaneous
  Country: US (occurrence: US)
  Receive Date: 20180828
  Receipt Date: 20180828
  Transmission Date: 20181010
  Serious: No
  Sender: FDA-Public Use
  Company Number: US-SA-2018SA237755

PATIENT
  Sex: Male

DRUGS (10)
  1. DUPIXENT [Suspect]
     Active Substance: DUPILUMAB
     Indication: DERMATITIS ATOPIC
     Dosage: 300 MG/2ML
     Route: 058
     Dates: start: 20180110
  2. PREDNISONE. [Concomitant]
     Active Substance: PREDNISONE
  3. HYDROXYCHLOROQUINE [Concomitant]
     Active Substance: HYDROXYCHLOROQUINE
  4. PRAVASTATIN. [Concomitant]
     Active Substance: PRAVASTATIN
  5. CELECOXIB. [Concomitant]
     Active Substance: CELECOXIB
  6. BETAMETH DIPROPIONATE [Concomitant]
  7. ONDANSETRON [Concomitant]
     Active Substance: ONDANSETRON
  8. FOLIC ACID. [Concomitant]
     Active Substance: FOLIC ACID
  9. METHOTREXATE. [Concomitant]
     Active Substance: METHOTREXATE
  10. HYOSCYAMINE. [Concomitant]
     Active Substance: HYOSCYAMINE

REACTIONS (1)
  - Hypoaesthesia [Not Recovered/Not Resolved]
